FAERS Safety Report 24796220 (Version 2)
Quarter: 2025Q1

REPORT INFORMATION
  Report Type: Report from Study
  Country: US (occurrence: US)
  Receive Date: 20250101
  Receipt Date: 20250121
  Transmission Date: 20250409
  Serious: No
  Sender: AMGEN
  Company Number: US-AMGEN-USASP2024255564

PATIENT
  Age: 76 Year
  Sex: Female

DRUGS (5)
  1. REPATHA [Suspect]
     Active Substance: EVOLOCUMAB
     Indication: Blood cholesterol increased
     Dosage: 140 MILLIGRAM, Q2WK
     Route: 065
     Dates: start: 202409
  2. REPATHA [Suspect]
     Active Substance: EVOLOCUMAB
     Route: 065
  3. SYMLIN [Concomitant]
     Active Substance: PRAMLINTIDE ACETATE
     Indication: Diabetes mellitus
  4. EPHEDRA [Concomitant]
     Active Substance: EPHEDRA
     Indication: Product used for unknown indication
     Route: 065
     Dates: start: 2016
  5. LANTUS [Concomitant]
     Active Substance: INSULIN GLARGINE
     Dates: start: 2016

REACTIONS (6)
  - Blood glucose increased [Unknown]
  - Injection site pain [Unknown]
  - Hypersensitivity [Unknown]
  - Accidental exposure to product [Unknown]
  - Incorrect dose administered by device [Unknown]
  - Device difficult to use [Unknown]

NARRATIVE: CASE EVENT DATE: 20240101
